FAERS Safety Report 6356392-X (Version None)
Quarter: 2009Q3

REPORT INFORMATION
  Report Type: 
  Country: None (occurrence: None)
  Receive Date: 20090914
  Receipt Date: 20090914
  Transmission Date: 20100115
  Serious: Yes (Other)
  Sender: FDA-Public Use
  Company Number: None

PATIENT
  Age: 61 Year
  Sex: Male
  Weight: 61.2356 kg

DRUGS (2)
  1. CARAC [Suspect]
     Indication: PRECANCEROUS SKIN LESION
     Dosage: APPLY TO EARS, SCALP, AND FACE ONCE A DAY BEDTIME TOP
     Route: 061
     Dates: start: 20090501, end: 20090531
  2. CARAC [Suspect]

REACTIONS (6)
  - COLLAGEN-VASCULAR DISEASE [None]
  - DRUG INEFFECTIVE [None]
  - OEDEMA PERIPHERAL [None]
  - PSORIASIS [None]
  - RASH [None]
  - SEBORRHOEIC DERMATITIS [None]
